FAERS Safety Report 15825099 (Version 1)
Quarter: 2019Q1

REPORT INFORMATION
  Report Type: Spontaneous
  Country: AU (occurrence: AU)
  Receive Date: 20190114
  Receipt Date: 20190114
  Transmission Date: 20190417
  Serious: Yes (Life-Threatening, Hospitalization, Other)
  Sender: FDA-Public Use
  Company Number: None

PATIENT
  Sex: Male
  Weight: 39 kg

DRUGS (2)
  1. SINGULAIR [Suspect]
     Active Substance: MONTELUKAST SODIUM
     Indication: ASTHMA PROPHYLAXIS
     Route: 048
  2. ASMOL [Concomitant]

REACTIONS (16)
  - Suicidal ideation [None]
  - Abnormal behaviour [None]
  - Irritability [None]
  - Enuresis [None]
  - Intentional self-injury [None]
  - Stereotypy [None]
  - Trichotillomania [None]
  - Crying [None]
  - Depression [None]
  - Obsessive-compulsive disorder [None]
  - Self esteem decreased [None]
  - Anger [None]
  - Anxiety [None]
  - Sleep terror [None]
  - Insomnia [None]
  - Disturbance in attention [None]
